FAERS Safety Report 9854951 (Version 3)
Quarter: 2014Q2

REPORT INFORMATION
  Report Type: Spontaneous
  Country: US (occurrence: None)
  Receive Date: 20131226
  Receipt Date: 20140530
  Transmission Date: 20141212
  Serious: Yes (Hospitalization, Disabling, Other)
  Sender: FDA-Public Use
  Company Number: PHEH2013US012048

PATIENT
  Age: 63 Year
  Sex: Female
  Weight: 74 kg

DRUGS (4)
  1. AFINITOR (RAD) [Suspect]
     Indication: BREAST CANCER
     Route: 048
     Dates: start: 20130327, end: 20130417
  2. AROMASIN (EXEMESTANE) [Suspect]
     Indication: BREAST CANCER
  3. OXYCONTIN (OXYCODONE HYDROCHLORIDE) [Concomitant]
  4. ARANSP (DARBEPOETIN ALFA) [Concomitant]

REACTIONS (19)
  - Rash [None]
  - Breast cancer [None]
  - Malignant neoplasm progression [None]
  - Cellulitis [None]
  - Dermatitis [None]
  - Fatigue [None]
  - Skin exfoliation [None]
  - Blister [None]
  - Skin hypertrophy [None]
  - Nail disorder [None]
  - Ascites [None]
  - Mucosal inflammation [None]
  - Oedema [None]
  - Decreased appetite [None]
  - Stomatitis [None]
  - Ulcer [None]
  - Joint swelling [None]
  - Dysphagia [None]
  - Purulence [None]
